FAERS Safety Report 24084551 (Version 1)
Quarter: 2024Q3

REPORT INFORMATION
  Report Type: Spontaneous
  Country: CN (occurrence: CN)
  Receive Date: 20240712
  Receipt Date: 20240712
  Transmission Date: 20241017
  Serious: Yes (Other)
  Sender: ACCORD
  Company Number: CN-Accord-432091

PATIENT
  Age: 9 Decade
  Sex: Male

DRUGS (9)
  1. ATORVASTATIN [Suspect]
     Active Substance: ATORVASTATIN
     Indication: Hyperlipidaemia
     Dosage: 40 MG DAILY
  2. SPIRONOLACTONE [Concomitant]
     Active Substance: SPIRONOLACTONE
  3. FINASTERIDE [Concomitant]
     Active Substance: FINASTERIDE
  4. TOLVAPTAN [Concomitant]
     Active Substance: TOLVAPTAN
  5. TRAZODONE [Concomitant]
     Active Substance: TRAZODONE HYDROCHLORIDE
  6. QUETIAPINE [Concomitant]
     Active Substance: QUETIAPINE
  7. TAMSULOSIN [Concomitant]
     Active Substance: TAMSULOSIN
  8. RIVAROXABAN [Concomitant]
     Active Substance: RIVAROXABAN
  9. FOLIC ACID [Concomitant]
     Active Substance: FOLIC ACID

REACTIONS (5)
  - Muscular weakness [Recovered/Resolved]
  - Carotid artery stenosis [Unknown]
  - Prostatomegaly [Unknown]
  - Renal cyst [Unknown]
  - Cholelithiasis [Unknown]
